FAERS Safety Report 7680672-9 (Version None)
Quarter: 2011Q3

REPORT INFORMATION
  Report Type: 
  Country: None (occurrence: None)
  Receive Date: 20110812
  Receipt Date: 20110810
  Transmission Date: 20111222
  Serious: Yes (Other)
  Sender: FDA-Public Use
  Company Number: US-PFIZER INC-2011164652

PATIENT
  Sex: Male
  Weight: 75.737 kg

DRUGS (5)
  1. DEPAKOTE [Interacting]
     Dosage: 500 MG THREE TABLETS, ALTERNATE DAY
     Route: 048
     Dates: start: 20050101
  2. DILANTIN [Interacting]
     Dosage: 200 MG MORNING, 100 MG AFTERNOON, 200 MG NIGHT
     Route: 048
  3. PHENYTOIN [Suspect]
     Dosage: UNK
  4. DEPAKOTE [Interacting]
     Indication: GRAND MAL CONVULSION
     Dosage: 500 MG TWO TABLETS, ALTERNATE DAY
     Route: 048
     Dates: start: 20050101
  5. DILANTIN [Interacting]
     Indication: GRAND MAL CONVULSION
     Dosage: 200 MG, 2X/DAY
     Route: 048
     Dates: start: 19890901

REACTIONS (7)
  - BLOOD GLUCOSE DECREASED [None]
  - CONVULSION [None]
  - SPEECH DISORDER [None]
  - INCOHERENT [None]
  - DRUG INTERACTION [None]
  - ANTICONVULSANT DRUG LEVEL INCREASED [None]
  - DIZZINESS [None]
